FAERS Safety Report 22960918 (Version 4)
Quarter: 2024Q3

REPORT INFORMATION
  Report Type: Spontaneous
  Country: US (occurrence: US)
  Receive Date: 20230920
  Receipt Date: 20240927
  Transmission Date: 20241016
  Serious: Yes (Other)
  Sender: CSL BEHRING
  Company Number: US-BEH-2023163274

PATIENT
  Sex: Female

DRUGS (36)
  1. HIZENTRA [Suspect]
     Active Substance: HUMAN IMMUNOGLOBULIN G
     Indication: Immunodeficiency common variable
     Dosage: 12 GRAM, QW
     Route: 058
  2. HIZENTRA [Suspect]
     Active Substance: HUMAN IMMUNOGLOBULIN G
     Dosage: UNK
     Route: 065
  3. HIZENTRA [Suspect]
     Active Substance: HUMAN IMMUNOGLOBULIN G
     Dosage: UNK
     Route: 065
  4. HIZENTRA [Suspect]
     Active Substance: HUMAN IMMUNOGLOBULIN G
     Dosage: 12 GRAM, QW
     Route: 058
  5. HIZENTRA [Suspect]
     Active Substance: HUMAN IMMUNOGLOBULIN G
     Dosage: 12 G, QW
     Route: 058
  6. OZEMPIC [Concomitant]
     Active Substance: SEMAGLUTIDE
     Dosage: UNK
  7. BUDESONIDE [Concomitant]
     Active Substance: BUDESONIDE
  8. LYRICA [Concomitant]
     Active Substance: PREGABALIN
  9. TRAMADOL HCL [Concomitant]
     Active Substance: TRAMADOL HYDROCHLORIDE
  10. FENOFIBRATE [Concomitant]
     Active Substance: FENOFIBRATE
  11. BREZTRI [Concomitant]
     Active Substance: BUDESONIDE\FORMOTEROL\GLYCOPYRROLATE
  12. NIFEDIPINE [Concomitant]
     Active Substance: NIFEDIPINE
  13. LISINOPRIL [Concomitant]
     Active Substance: LISINOPRIL
  14. SPIRIVA [Concomitant]
     Active Substance: TIOTROPIUM BROMIDE MONOHYDRATE
  15. NABUMETONE [Concomitant]
     Active Substance: NABUMETONE
  16. OMEPRAZOLE [Concomitant]
     Active Substance: OMEPRAZOLE
  17. SIMVASTATIN [Concomitant]
     Active Substance: SIMVASTATIN
  18. HYDROCHLOROTHIAZIDE [Concomitant]
     Active Substance: HYDROCHLOROTHIAZIDE
  19. MELOXICAM [Concomitant]
     Active Substance: MELOXICAM
  20. ALBUTEROL SULFATE [Concomitant]
     Active Substance: ALBUTEROL SULFATE
  21. BREO ELLIPTA [Concomitant]
     Active Substance: FLUTICASONE FUROATE\VILANTEROL TRIFENATATE
  22. GRAMICIDIN\NEOMYCIN\POLYMYXIN B SULFATE [Concomitant]
     Active Substance: GRAMICIDIN\NEOMYCIN\POLYMYXIN B SULFATE
  23. SPIRIVA RESPIMAT [Concomitant]
     Active Substance: TIOTROPIUM BROMIDE
  24. VENTOLIN HFA [Concomitant]
     Active Substance: ALBUTEROL SULFATE
  25. ZETIA [Concomitant]
     Active Substance: EZETIMIBE
     Dosage: 10 MG
  26. CLINDAMYCIN [Concomitant]
     Active Substance: CLINDAMYCIN
     Dosage: 300 MG
  27. FLOVENT HFA [Concomitant]
     Active Substance: FLUTICASONE PROPIONATE
     Dosage: 44 ?G
  28. FLUOXETINE HYDROCHLORIDE [Concomitant]
     Active Substance: FLUOXETINE HYDROCHLORIDE
     Dosage: 20 MG
  29. FLUTICASONE [Concomitant]
     Active Substance: FLUTICASONE
     Dosage: 50 ?G
  30. FLUZONE QUADRIVALENT NOS [Concomitant]
     Active Substance: INFLUENZA A VIRUS A/CALIFORNIA/7/2009 X-179A (H1N1) ANTIGEN (FORMALDEHYDE INACTIVATED)\INFLUENZA A V
  31. IRBESARTAN [Concomitant]
     Active Substance: IRBESARTAN
     Dosage: 300 MG
  32. JANUMET [Concomitant]
     Active Substance: METFORMIN HYDROCHLORIDE\SITAGLIPTIN PHOSPHATE
     Dosage: 50 MG
  33. LEVOTHYROXINE [Concomitant]
     Active Substance: LEVOTHYROXINE\LEVOTHYROXINE SODIUM
     Dosage: 100 ?G
  34. LEVOTHYROXINE [Concomitant]
     Active Substance: LEVOTHYROXINE\LEVOTHYROXINE SODIUM
     Dosage: 88 UG
  35. LORATADINE [Concomitant]
     Active Substance: LORATADINE
     Dosage: 10 MG
  36. MUCINEX [Concomitant]
     Active Substance: GUAIFENESIN
     Indication: Bronchitis chronic
     Route: 055

REACTIONS (13)
  - Diabetes mellitus [Unknown]
  - Sciatica [Unknown]
  - Arthritis [Unknown]
  - Pruritus [Unknown]
  - Infusion site swelling [Recovering/Resolving]
  - Pruritus [Unknown]
  - Pruritus [Unknown]
  - Platelet count increased [Unknown]
  - Wrong technique in product usage process [Unknown]
  - Mass [Unknown]
  - Weight decreased [Unknown]
  - Scratch [Unknown]
  - Cough [Unknown]

NARRATIVE: CASE EVENT DATE: 20220101
